FAERS Safety Report 24273485 (Version 1)
Quarter: 2024Q3

REPORT INFORMATION
  Report Type: Spontaneous
  Country: FR (occurrence: FR)
  Receive Date: 20240902
  Receipt Date: 20240902
  Transmission Date: 20241017
  Serious: Yes (Hospitalization)
  Sender: Waylis
  Company Number: None

PATIENT
  Age: 3 Year
  Sex: Male

DRUGS (1)
  1. DIAZEPAM [Suspect]
     Active Substance: DIAZEPAM
     Indication: Tonic convulsion
     Dosage: ; IN TOTAL
     Dates: start: 20240705

REACTIONS (1)
  - Benzodiazepine drug level abnormal [Recovered/Resolved]

NARRATIVE: CASE EVENT DATE: 20240709
